FAERS Safety Report 7591842-2 (Version None)
Quarter: 2011Q3

REPORT INFORMATION
  Report Type: 
  Country: None (occurrence: None)
  Receive Date: 20110701
  Receipt Date: 20110701
  Transmission Date: 20111222
  Serious: Yes (Hospitalization)
  Sender: FDA-Public Use
  Company Number: None

PATIENT
  Age: 13 Year
  Sex: Female
  Weight: 55 kg

DRUGS (4)
  1. RITONAVIR [Concomitant]
  2. ATAZANAVIR [Suspect]
     Indication: HIV INFECTION
     Dosage: 300MG PO Q DAILY
     Route: 048
     Dates: start: 20110622, end: 20110628
  3. TRUVADA [Concomitant]
  4. EMTRICITABINE [Concomitant]

REACTIONS (3)
  - URTICARIA [None]
  - ANGIOEDEMA [None]
  - JAUNDICE [None]
